FAERS Safety Report 5884835-4 (Version None)
Quarter: 2008Q3

REPORT INFORMATION
  Report Type: 
  Country: None (occurrence: None)
  Receive Date: 20080916
  Receipt Date: 20080915
  Transmission Date: 20090109
  Serious: Yes (Other)
  Sender: FDA-Public Use
  Company Number: US-BAYER-200825357NA

PATIENT
  Age: 28 Year
  Sex: Female
  Weight: 57 kg

DRUGS (1)
  1. MIRENA [Suspect]
     Indication: CONTRACEPTION
     Route: 015
     Dates: start: 20061130, end: 20080422

REACTIONS (5)
  - ABDOMINAL PAIN [None]
  - IUCD COMPLICATION [None]
  - OVARIAN CYST [None]
  - PELVIC PAIN [None]
  - UTERINE RUPTURE [None]
